FAERS Safety Report 21220996 (Version 1)
Quarter: 2022Q3

REPORT INFORMATION
  Report Type: Spontaneous
  Country: CA (occurrence: CA)
  Receive Date: 20220817
  Receipt Date: 20220817
  Transmission Date: 20221027
  Serious: Yes (Hospitalization)
  Sender: FDA-Public Use
  Company Number: CA-ROCHE-2658558

PATIENT
  Age: 37 Year
  Sex: Female

DRUGS (7)
  1. CLONAZEPAM [Suspect]
     Active Substance: CLONAZEPAM
     Indication: Product used for unknown indication
  2. ABILIFY [Suspect]
     Active Substance: ARIPIPRAZOLE
     Indication: Product used for unknown indication
  3. ENTYVIO [Suspect]
     Active Substance: VEDOLIZUMAB
     Indication: Crohn^s disease
     Route: 042
  4. MIRTAZAPINE [Suspect]
     Active Substance: MIRTAZAPINE
     Indication: Product used for unknown indication
  5. VENLAFAXINE [Suspect]
     Active Substance: VENLAFAXINE HYDROCHLORIDE
     Indication: Product used for unknown indication
  6. CLOTHIAPINE [Suspect]
     Active Substance: CLOTHIAPINE
     Indication: Product used for unknown indication
  7. ATIVAN [Concomitant]
     Active Substance: LORAZEPAM

REACTIONS (7)
  - Blood creatine phosphokinase increased [Unknown]
  - Fatigue [Unknown]
  - Hypoaesthesia [Unknown]
  - Mental disorder [Unknown]
  - Rhabdomyolysis [Unknown]
  - Sensory loss [Unknown]
  - Malaise [Unknown]
